FAERS Safety Report 5448235-3 (Version None)
Quarter: 2007Q3

REPORT INFORMATION
  Report Type: 
  Country: None (occurrence: None)
  Receive Date: 20070911
  Receipt Date: 20070903
  Transmission Date: 20080115
  Serious: Yes (Hospitalization, Other)
  Sender: FDA-Public Use
  Company Number: PHBS2007BR14645

PATIENT
  Age: 48 Year
  Sex: Female
  Weight: 56 kg

DRUGS (2)
  1. CODATEN [Suspect]
     Indication: PAIN
     Dosage: DICLO 50 MG / CODE 50 MG,Q12H
     Route: 048
  2. LIDOCAINE [Concomitant]
     Indication: PAIN
     Route: 061

REACTIONS (3)
  - LEUKOCYTOSIS [None]
  - PRURITUS [None]
  - WHITE BLOOD CELL COUNT INCREASED [None]
